FAERS Safety Report 17556691 (Version 1)
Quarter: 2020Q1

REPORT INFORMATION
  Report Type: Report from Study
  Country: IN (occurrence: IN)
  Receive Date: 20200318
  Receipt Date: 20200318
  Transmission Date: 20200409
  Serious: Yes (Death)
  Sender: FDA-Public Use
  Company Number: NVSC2020IN077603

PATIENT
  Age: 63 Year
  Sex: Male

DRUGS (1)
  1. REVOLADE [Suspect]
     Active Substance: ELTROMBOPAG
     Indication: APLASTIC ANAEMIA
     Dosage: 50 MG, QD (ONCE DAILY)
     Route: 065
     Dates: start: 20181226

REACTIONS (1)
  - Death [Fatal]

NARRATIVE: CASE EVENT DATE: 20190729
